FAERS Safety Report 11181101 (Version 1)
Quarter: 2015Q2

REPORT INFORMATION
  Report Type: Spontaneous
  Country: US (occurrence: None)
  Receive Date: 20150610
  Receipt Date: 20150610
  Transmission Date: 20150821
  Serious: Yes (Disabling)
  Sender: FDA-Public Use
  Company Number: None

PATIENT
  Age: 53 Year
  Sex: Female
  Weight: 65.32 kg

DRUGS (6)
  1. TRAMADOL 50 MG [Suspect]
     Active Substance: TRAMADOL
     Indication: ARTHRALGIA
     Dosage: 1 TABLET EVERY 6 HOURS, AS NEEDED
     Route: 048
     Dates: start: 20150608, end: 20150608
  2. METHYLPREDNISONE [Concomitant]
     Active Substance: METHYLPREDNISOLONE
  3. BUPROPION WELLBUTRIN [Concomitant]
  4. HYDROXYCHLOROQUINE [Concomitant]
     Active Substance: HYDROXYCHLOROQUINE
  5. VITAMIN D-2 [Concomitant]
  6. TRAMADOL [Concomitant]
     Active Substance: TRAMADOL

REACTIONS (9)
  - Somnolence [None]
  - Nausea [None]
  - Hyperhidrosis [None]
  - Headache [None]
  - Diarrhoea [None]
  - Dizziness [None]
  - Asthenia [None]
  - Dyspepsia [None]
  - Dry mouth [None]

NARRATIVE: CASE EVENT DATE: 20150608
